FAERS Safety Report 13940778 (Version 1)
Quarter: 2017Q3

REPORT INFORMATION
  Report Type: Spontaneous
  Country: TN (occurrence: TN)
  Receive Date: 20170906
  Receipt Date: 20170906
  Transmission Date: 20171127
  Serious: Yes (Life-Threatening, Hospitalization)
  Sender: FDA-Public Use
  Company Number: TN-BIOMARINAP-TN-2017-115275

PATIENT
  Age: 8 Year
  Sex: Male
  Weight: 24 kg

DRUGS (5)
  1. SALBUTAMOL [Concomitant]
     Active Substance: ALBUTEROL
     Indication: PRODUCT USED FOR UNKNOWN INDICATION
  2. ALDURAZYME [Suspect]
     Active Substance: LARONIDASE
     Indication: MUCOPOLYSACCHARIDOSIS I
     Dosage: 15 MG, QW
     Route: 041
     Dates: start: 201703
  3. ALDACTONE [Concomitant]
     Active Substance: SPIRONOLACTONE
     Indication: COR PULMONALE CHRONIC
     Dosage: UNK
     Dates: start: 201701
  4. BECLOMETHASONE                     /00212602/ [Concomitant]
     Active Substance: BECLOMETHASONE
     Indication: ASTHMA
  5. ANGIOTEC [Concomitant]
     Indication: PRODUCT USED FOR UNKNOWN INDICATION
     Dosage: 7.5 MG, QD

REACTIONS (4)
  - Left ventricular failure [Unknown]
  - Hypertension [Recovering/Resolving]
  - Left ventricular hypertrophy [Unknown]
  - Cardiomegaly [Unknown]

NARRATIVE: CASE EVENT DATE: 201708
